FAERS Safety Report 9217051 (Version 1)
Quarter: 2013Q2

REPORT INFORMATION
  Report Type: Spontaneous
  Country: US (occurrence: US)
  Receive Date: 20130408
  Receipt Date: 20130408
  Transmission Date: 20140414
  Serious: Yes (Death, Other)
  Sender: FDA-Public Use
  Company Number: US-ELI_LILLY_AND_COMPANY-US201304001580

PATIENT
  Age: 47 Year
  Sex: Female

DRUGS (1)
  1. ALIMTA [Suspect]
     Indication: CERVIX CARCINOMA
     Dosage: UNK
     Route: 042
     Dates: start: 20120925, end: 20130128

REACTIONS (3)
  - Death [Fatal]
  - Malignant neoplasm progression [Unknown]
  - Off label use [Unknown]
